FAERS Safety Report 4875487-0 (Version None)
Quarter: 2006Q1

REPORT INFORMATION
  Report Type: 
  Country: None (occurrence: None)
  Receive Date: 20060109
  Receipt Date: 20051229
  Transmission Date: 20060701
  Serious: Yes (Hospitalization)
  Sender: FDA-Public Use
  Company Number: US-BRISTOL-MYERS SQUIBB COMPANY-13232491

PATIENT
  Age: 78 Year
  Sex: Male
  Weight: 75 kg

DRUGS (4)
  1. COUMADIN [Suspect]
     Dates: start: 20051223
  2. PLAVIX [Suspect]
     Indication: CORONARY ARTERIAL STENT INSERTION
     Dates: start: 20051220
  3. TICLID [Suspect]
     Dates: start: 20051201, end: 20051223
  4. FLOVENT [Concomitant]

REACTIONS (1)
  - ANGINA PECTORIS [None]
